FAERS Safety Report 16826136 (Version 1)
Quarter: 2019Q4

REPORT INFORMATION
  Report Type: Spontaneous
  Country: US (occurrence: US)
  Receive Date: 20190918
  Receipt Date: 20190918
  Transmission Date: 20200122
  Serious: No
  Sender: FDA-Public Use
  Company Number: None

PATIENT
  Age: 69 Year
  Sex: Female
  Weight: 80.55 kg

DRUGS (2)
  1. GABAPENTIN 300 MG GENERIC FOR NEURONTIN NDC 50228-0180-05 [Suspect]
     Active Substance: GABAPENTIN
     Indication: NEURALGIA
     Dosage: ?          QUANTITY:1 CAPSULE(S);?
     Route: 048
     Dates: start: 20190826, end: 20190917
  2. CPAP [Concomitant]
     Active Substance: DEVICE

REACTIONS (7)
  - Disorientation [None]
  - Peripheral swelling [None]
  - Anxiety [None]
  - Somnolence [None]
  - Product substitution issue [None]
  - Constipation [None]
  - Disturbance in attention [None]

NARRATIVE: CASE EVENT DATE: 20190831
